FAERS Safety Report 4533114-6 (Version None)
Quarter: 2004Q4

REPORT INFORMATION
  Report Type: 
  Country: None (occurrence: None)
  Receive Date: 20041206
  Receipt Date: 20041021
  Transmission Date: 20050328
  Serious: No
  Sender: FDA-Public Use
  Company Number: USA041081870

PATIENT
  Sex: Female

DRUGS (2)
  1. CYMBALTA [Suspect]
     Indication: MAJOR DEPRESSION
  2. PROZAC [Suspect]

REACTIONS (3)
  - ABNORMAL BEHAVIOUR [None]
  - PSYCHOTIC DISORDER [None]
  - SUICIDAL IDEATION [None]
